FAERS Safety Report 8806159 (Version 1)
Quarter: 2012Q4

REPORT INFORMATION
  Report Type: Spontaneous
  Country: CH (occurrence: None)
  Receive Date: 20120918
  Receipt Date: 20120918
  Transmission Date: 20130627
  Serious: Yes (Hospitalization, Other)
  Sender: FDA-Public Use
  Company Number: 20120554

PATIENT
  Age: 76 Year
  Sex: Male

DRUGS (1)
  1. VENOFER [Suspect]
     Dosage: 200 mg over two hours
     Dates: start: 20120720, end: 20120720

REACTIONS (4)
  - Anaphylactoid reaction [None]
  - Loss of consciousness [None]
  - Bladder sphincter atony [None]
  - Anal sphincter atony [None]
